FAERS Safety Report 19814817 (Version 3)
Quarter: 2022Q1

REPORT INFORMATION
  Report Type: Report from Study
  Country: JP (occurrence: JP)
  Receive Date: 20210910
  Receipt Date: 20220331
  Transmission Date: 20220423
  Serious: No
  Sender: FDA-Public Use
  Company Number: JP-PFIZER INC-202101130848

PATIENT
  Age: 86 Year
  Sex: Male
  Weight: 63 kg

DRUGS (10)
  1. VYNDAQEL [Suspect]
     Active Substance: TAFAMIDIS MEGLUMINE
     Indication: Cardiac amyloidosis
     Dosage: 80 MG, DAILY
     Route: 048
  2. SPIRONOLACTONE [Suspect]
     Active Substance: SPIRONOLACTONE
     Indication: Diuretic therapy
     Dosage: 25 MG, 1X/DAY
     Route: 048
     Dates: end: 20210827
  3. SPIRONOLACTONE [Suspect]
     Active Substance: SPIRONOLACTONE
     Indication: Cardiac failure
     Dosage: UNK, ALTERNATE DAY
     Route: 048
     Dates: start: 20210913
  4. AZOSEMIDE [Suspect]
     Active Substance: AZOSEMIDE
     Indication: Diuretic therapy
     Dosage: 30 MG, 1X/DAY
     Route: 048
     Dates: end: 20210827
  5. AZOSEMIDE [Suspect]
     Active Substance: AZOSEMIDE
     Indication: Cardiac failure
     Dosage: 30 MG, ALTERNATE DAY
     Route: 048
     Dates: start: 20210913
  6. SAMSCA [Concomitant]
     Active Substance: TOLVAPTAN
     Indication: Cardiac failure
     Dosage: 3.75 MG, 1X/DAY
     Route: 048
     Dates: end: 20210617
  7. ENALAPRIL [Concomitant]
     Active Substance: ENALAPRIL
     Indication: Cardiac failure
     Dosage: 5 MG, 1X/DAY
     Route: 048
  8. FEBUXOSTAT [Concomitant]
     Active Substance: FEBUXOSTAT
     Indication: Hyperuricaemia
     Dosage: 20 MG, 1X/DAY
     Route: 048
  9. CILOSTAZOL [Concomitant]
     Active Substance: CILOSTAZOL
     Indication: Arteriosclerosis
     Dosage: 50 MG, 2X/DAY
     Route: 048
  10. LORATADINE [Concomitant]
     Active Substance: LORATADINE
     Indication: Rhinitis allergic
     Dosage: 10 MG, 1X/DAY
     Route: 048

REACTIONS (1)
  - Renal impairment [Recovered/Resolved]

NARRATIVE: CASE EVENT DATE: 20210827
